FAERS Safety Report 7988153-X (Version None)
Quarter: 2011Q4

REPORT INFORMATION
  Report Type: 
  Country: None (occurrence: None)
  Receive Date: 20111216
  Receipt Date: 20110727
  Transmission Date: 20120403
  Serious: No
  Sender: FDA-Public Use
  Company Number: US-BRISTOL-MYERS SQUIBB COMPANY-15809882

PATIENT
  Age: 62 Year
  Sex: Male

DRUGS (5)
  1. ABILIFY [Suspect]
     Indication: DEPRESSION
  2. CYMBALTA [Concomitant]
  3. CELEXA [Concomitant]
  4. ABILIFY [Suspect]
     Indication: ANXIETY
  5. KLONOPIN [Concomitant]
     Dosage: 1DF:0.5 MG EACH IN MORNING AND NIGHT

REACTIONS (2)
  - DIARRHOEA [None]
  - FATIGUE [None]
